FAERS Safety Report 24278223 (Version 1)
Quarter: 2024Q3

REPORT INFORMATION
  Report Type: Spontaneous
  Country: FR (occurrence: FR)
  Receive Date: 20240903
  Receipt Date: 20240903
  Transmission Date: 20241017
  Serious: Yes (Other)
  Sender: TEVA
  Company Number: None

PATIENT
  Age: 78 Year
  Sex: Male
  Weight: 60 kg

DRUGS (16)
  1. DOXORUBICIN [Suspect]
     Active Substance: DOXORUBICIN
     Indication: B-cell lymphoma
     Dosage: TIME INTERVAL: CYCLICAL: DOXORUBICIN TEVA
     Route: 042
     Dates: start: 20240711, end: 20240711
  2. CYCLOPHOSPHAMIDE [Suspect]
     Active Substance: CYCLOPHOSPHAMIDE
     Indication: B-cell lymphoma
     Dosage: TIME INTERVAL: CYCLICAL
     Route: 042
     Dates: start: 20240711, end: 20240711
  3. VALACYCLOVIR HYDROCHLORIDE [Concomitant]
     Active Substance: VALACYCLOVIR HYDROCHLORIDE
     Indication: Product used for unknown indication
     Route: 065
  4. IPRATROPIUM BROMIDE [Concomitant]
     Active Substance: IPRATROPIUM BROMIDE\IPRATROPIUM BROMIDE ANHYDROUS
     Indication: Product used for unknown indication
     Route: 065
  5. BACTRIM [Concomitant]
     Active Substance: SULFAMETHOXAZOLE\TRIMETHOPRIM
     Indication: Product used for unknown indication
     Route: 065
  6. METHYLPREDNISOLONE [Suspect]
     Active Substance: METHYLPREDNISOLONE
     Indication: B-cell lymphoma
     Route: 042
     Dates: start: 20240628, end: 20240716
  7. FOLIC ACID [Concomitant]
     Active Substance: FOLIC ACID
     Indication: Product used for unknown indication
     Route: 065
  8. ONDANSETRON [Suspect]
     Active Substance: ONDANSETRON
     Indication: Prophylaxis of nausea and vomiting
     Route: 042
     Dates: start: 20240711, end: 20240720
  9. APREPITANT [Suspect]
     Active Substance: APREPITANT
     Indication: Prophylaxis of nausea and vomiting
     Route: 048
     Dates: start: 20240712, end: 20240713
  10. APREPITANT [Suspect]
     Active Substance: APREPITANT
     Indication: Prophylaxis of nausea and vomiting
     Route: 048
     Dates: start: 20240711, end: 20240711
  11. VINCRISTINE [Suspect]
     Active Substance: VINCRISTINE
     Indication: B-cell lymphoma
     Dosage: TIME INTERVAL: CYCLICAL
     Route: 042
     Dates: start: 20240711, end: 20240711
  12. ALBUTEROL [Concomitant]
     Active Substance: ALBUTEROL
     Indication: Product used for unknown indication
     Route: 065
  13. RUXIENCE [Suspect]
     Active Substance: RITUXIMAB-PVVR
     Indication: B-cell lymphoma
     Dosage: TIME INTERVAL: CYCLICAL
     Route: 042
     Dates: start: 20240711, end: 20240711
  14. POLARAMINE [Suspect]
     Active Substance: DEXCHLORPHENIRAMINE MALEATE
     Indication: Allergy prophylaxis
     Dosage: POLARAMINE 5 MG/1 ML,
     Route: 042
     Dates: start: 20240711, end: 20240711
  15. ERYTHROPOIETIN [Concomitant]
     Active Substance: ERYTHROPOIETIN
     Indication: Product used for unknown indication
     Dosage: RECOMBINANT HUMAN ERYTHROPOIETIN 1 HEPOFL 13 GLYCOFORM BETA
     Route: 065
  16. LANSOPRAZOLE [Concomitant]
     Active Substance: LANSOPRAZOLE
     Indication: Product used for unknown indication
     Route: 065

REACTIONS (2)
  - Cholestasis [Recovering/Resolving]
  - Hepatic cytolysis [Recovered/Resolved]

NARRATIVE: CASE EVENT DATE: 20240715
